FAERS Safety Report 25413682 (Version 1)
Quarter: 2025Q2

REPORT INFORMATION
  Report Type: Report from Study
  Country: US (occurrence: US)
  Receive Date: 20250609
  Receipt Date: 20250609
  Transmission Date: 20250717
  Serious: Yes (Hospitalization)
  Sender: EISAI
  Company Number: US-Eisai-EC-2025-190509

PATIENT
  Age: 66 Year
  Sex: Male
  Weight: 68 kg

DRUGS (31)
  1. LENVIMA [Suspect]
     Active Substance: LENVATINIB
     Indication: Thyroid cancer
     Dates: start: 20200904
  2. LENVIMA [Suspect]
     Active Substance: LENVATINIB
     Dates: start: 2021
  3. LENVIMA [Suspect]
     Active Substance: LENVATINIB
     Dates: end: 2022
  4. LENVIMA [Suspect]
     Active Substance: LENVATINIB
     Dates: start: 2022, end: 2023
  5. LENVIMA [Suspect]
     Active Substance: LENVATINIB
     Dates: end: 2024
  6. LENVIMA [Suspect]
     Active Substance: LENVATINIB
     Dates: start: 2024, end: 2025
  7. LENVIMA [Suspect]
     Active Substance: LENVATINIB
     Dates: start: 2025, end: 20250327
  8. LENVIMA [Suspect]
     Active Substance: LENVATINIB
     Dates: start: 20250328, end: 202505
  9. DEXAMETHASONE [Concomitant]
     Active Substance: DEXAMETHASONE
  10. ELETRIPTAN [Concomitant]
     Active Substance: ELETRIPTAN
  11. HYDROCHLOROTHIAZIDE [Concomitant]
     Active Substance: HYDROCHLOROTHIAZIDE
  12. LEVOTHYROXINE [Concomitant]
     Active Substance: LEVOTHYROXINE
  13. MESALAMINE [Concomitant]
     Active Substance: MESALAMINE
  14. ONDANSETRON [Concomitant]
     Active Substance: ONDANSETRON
  15. TOPIRAMATE [Concomitant]
     Active Substance: TOPIRAMATE
  16. VITAMIN C [Concomitant]
     Active Substance: ASCORBIC ACID
  17. VITAMIN D3 [Concomitant]
     Active Substance: CHOLECALCIFEROL
  18. GRANISETRON HYDROCHLORIDE [Concomitant]
     Active Substance: GRANISETRON HYDROCHLORIDE
  19. METHYLPREDNISOLONE [Concomitant]
     Active Substance: METHYLPREDNISOLONE
  20. AZITHROMYCIN [Concomitant]
     Active Substance: AZITHROMYCIN
  21. XARELTO [Concomitant]
     Active Substance: RIVAROXABAN
  22. KEPPRA [Concomitant]
     Active Substance: LEVETIRACETAM
  23. DOXYCYCLINE [Concomitant]
     Active Substance: DOXYCYCLINE
  24. FLUTICASONE [Concomitant]
     Active Substance: FLUTICASONE
  25. ALBUTEROL\IPRATROPIUM [Concomitant]
     Active Substance: ALBUTEROL\IPRATROPIUM
  26. LANSOPRAZOLE [Concomitant]
     Active Substance: LANSOPRAZOLE
  27. LEVETIRACETAM [Concomitant]
     Active Substance: LEVETIRACETAM
  28. PREDNISONE [Concomitant]
     Active Substance: PREDNISONE
  29. PSEUDOEPHEDRINE [Concomitant]
     Active Substance: PSEUDOEPHEDRINE
  30. SYMBICORT [Concomitant]
     Active Substance: BUDESONIDE\FORMOTEROL FUMARATE DIHYDRATE
  31. ADVIL [Concomitant]
     Active Substance: IBUPROFEN

REACTIONS (1)
  - Acute myocardial infarction [Recovered/Resolved]

NARRATIVE: CASE EVENT DATE: 20250527
